FAERS Safety Report 16724285 (Version 1)
Quarter: 2019Q3

REPORT INFORMATION
  Report Type: Spontaneous
  Country: JP (occurrence: JP)
  Receive Date: 20190821
  Receipt Date: 20190821
  Transmission Date: 20191005
  Serious: Yes (Other)
  Sender: FDA-Public Use
  Company Number: JP-PFIZER INC-2019278764

PATIENT
  Age: 68 Year
  Sex: Male

DRUGS (18)
  1. LYRICA [Suspect]
     Active Substance: PREGABALIN
     Indication: BACK PAIN
     Dosage: 100 MG, DAILY (25MG IN THE MORNING, 75MG AT NIGHT)
     Route: 048
     Dates: start: 20190524, end: 20190628
  2. NAUZELIN [Concomitant]
     Active Substance: DOMPERIDONE
     Dosage: UNK
  3. LOXONIN [Concomitant]
     Active Substance: LOXOPROFEN SODIUM
     Dosage: UNK
  4. EPADEL-S [Concomitant]
     Active Substance: ICOSAPENT ETHYL
     Dosage: UNK
  5. BAYASPIRIN [Concomitant]
     Active Substance: ASPIRIN
     Dosage: UNK
  6. RABEPRAZOLE NA [Concomitant]
     Active Substance: RABEPRAZOLE SODIUM
  7. MIRAPEX [Concomitant]
     Active Substance: PRAMIPEXOLE DIHYDROCHLORIDE
     Dosage: UNK
  8. CALONAL [Concomitant]
     Active Substance: ACETAMINOPHEN
     Dosage: UNK
  9. SYMMETREL [Concomitant]
     Active Substance: AMANTADINE HYDROCHLORIDE
     Dosage: UNK
  10. CELECOX [Concomitant]
     Active Substance: CELECOXIB
     Dosage: UNK
  11. TELMISARTAN. [Concomitant]
     Active Substance: TELMISARTAN
     Dosage: UNK
  12. STALEVO [Concomitant]
     Active Substance: CARBIDOPA\ENTACAPONE\LEVODOPA
     Dosage: UNK
  13. TRERIEF [Concomitant]
     Active Substance: ZONISAMIDE
     Dosage: UNK
  14. MENESIT [Concomitant]
     Active Substance: CARBIDOPA\LEVODOPA
     Dosage: UNK
  15. LYRICA [Suspect]
     Active Substance: PREGABALIN
     Indication: NEURALGIA
     Dosage: 25 MG, 2X/DAY (IN THE MORNING AND AT NIGHT)
     Route: 048
     Dates: start: 20190517, end: 20190523
  16. PITAVASTATIN CA [Concomitant]
     Active Substance: PITAVASTATIN CALCIUM
     Dosage: UNK
  17. ARTIST [Concomitant]
     Active Substance: CARVEDILOL
     Dosage: UNK
  18. FP OD [Concomitant]
     Active Substance: SELEGILINE HYDROCHLORIDE
     Dosage: UNK

REACTIONS (3)
  - Xanthopsia [Recovering/Resolving]
  - Photopsia [Recovering/Resolving]
  - Erythropsia [Recovering/Resolving]

NARRATIVE: CASE EVENT DATE: 20190625
